FAERS Safety Report 6999309-7 (Version None)
Quarter: 2010Q3

REPORT INFORMATION
  Report Type: 
  Country: None (occurrence: None)
  Receive Date: 20100920
  Receipt Date: 20100309
  Transmission Date: 20110219
  Serious: Yes (Other)
  Sender: FDA-Public Use
  Company Number: US-ASTRAZENECA-2007UW27804

PATIENT
  Age: 49 Year
  Sex: Female
  Weight: 112.9 kg

DRUGS (26)
  1. SEROQUEL [Suspect]
     Indication: SCHIZOPHRENIA
     Dosage: 100 MG- 800 MG
     Route: 048
     Dates: start: 19991012
  2. SEROQUEL [Suspect]
     Dosage: 100 MG, 200 MG AND 800 MG
     Route: 048
     Dates: start: 20000101
  3. SEROQUEL [Suspect]
     Dosage: 100MG TO 800MG
     Route: 048
     Dates: start: 20040413
  4. WELLBUTRIN XL [Concomitant]
     Dosage: 300MG DISPENSED
     Dates: start: 20051201
  5. WELLBUTRIN XL [Concomitant]
     Dates: start: 20060101
  6. AMBIEN [Concomitant]
     Dosage: 6.25MG TO 12.5MG
     Dates: start: 20020207
  7. AMBIEN [Concomitant]
     Dates: start: 20060306
  8. ZETIA [Concomitant]
     Dates: start: 20051201
  9. LIPITOR [Concomitant]
     Dates: start: 20060306
  10. NEXIUM [Concomitant]
     Dates: start: 20070322
  11. ALPRAZOLAM [Concomitant]
     Dosage: 0.5MG TO 1.5MG
     Dates: start: 20000509
  12. GLUCOPHAGE [Concomitant]
     Dates: start: 20050317
  13. DILANTIN [Concomitant]
     Dates: start: 20070322
  14. IBUPROFEN [Concomitant]
     Dates: start: 20000606
  15. PLAVIX [Concomitant]
     Dates: start: 20060306
  16. PAXIL [Concomitant]
     Dosage: 20MG DISPENSED
     Dates: start: 20000710
  17. LISINOPRIL [Concomitant]
     Dosage: 20MG DISPENSED
     Dates: start: 20050308
  18. ANTARA (MICRONIZED) [Concomitant]
     Dosage: 130MG DISPENSED
     Dates: start: 20050406
  19. HYDROCODONE BITARTRATE AND ACETAMINOPHEN [Concomitant]
     Dosage: 5/500 DISPENSED
     Dates: start: 20051201
  20. PROTONIX [Concomitant]
     Dosage: 40 MG DISPENSED
     Dates: start: 20051201
  21. CVS ASPIRIN [Concomitant]
     Dosage: 81MG DISPENSED
     Dates: start: 20051202
  22. LEXAPRO [Concomitant]
     Dosage: 10MG DISPENSED
     Dates: start: 20051201
  23. CLONAZEPAM [Concomitant]
     Dosage: 0.5MG DISPENSED
     Dates: start: 20061109
  24. ENALAPRIL MALEATE [Concomitant]
     Dosage: 5MG DISPENSED
     Dates: start: 20070430
  25. LYRICA [Concomitant]
     Dosage: 150MG DISPENSED
     Dates: start: 20070115
  26. NOVOLOG [Concomitant]
     Dosage: 10 UNITS THREE TIMES A DAY
     Dates: start: 20060306

REACTIONS (8)
  - BLOOD CHOLESTEROL INCREASED [None]
  - CEREBROVASCULAR ACCIDENT [None]
  - DIABETES MELLITUS [None]
  - DIZZINESS [None]
  - FALL [None]
  - HEADACHE [None]
  - HYPERLIPIDAEMIA [None]
  - THERMAL BURN [None]
